FAERS Safety Report 5802719-4 (Version None)
Quarter: 2008Q3

REPORT INFORMATION
  Report Type: 
  Country: None (occurrence: None)
  Receive Date: 20080708
  Receipt Date: 20080626
  Transmission Date: 20090109
  Serious: Yes (Other)
  Sender: FDA-Public Use
  Company Number: US-ELI_LILLY_AND_COMPANY-US200806005959

PATIENT
  Sex: Female

DRUGS (1)
  1. SYMBYAX [Suspect]
     Indication: WEIGHT INCREASED

REACTIONS (2)
  - BLOOD CALCIUM INCREASED [None]
  - RENAL FAILURE [None]
